FAERS Safety Report 18472579 (Version 1)
Quarter: 2020Q4

REPORT INFORMATION
  Report Type: Spontaneous
  Country: US (occurrence: AU)
  Receive Date: 20201104
  Receipt Date: 20201104
  Transmission Date: 20210114
  Serious: Yes (Other)
  Sender: FDA-Public Use
  Company Number: None

PATIENT
  Age: 54 Year
  Sex: Male
  Weight: 103.8 kg

DRUGS (124)
  1. CHLORHEXIDINE 0.12% ORAL RINSE [Suspect]
     Active Substance: CHLORHEXIDINE
     Indication: PHARYNGEAL DISORDER
     Route: 002
     Dates: start: 20200801, end: 20201015
  2. ALBUTEROL. [Concomitant]
     Active Substance: ALBUTEROL
  3. AMLODIPINE [Concomitant]
     Active Substance: AMLODIPINE BESYLATE
  4. ARTIFICIAL TEARS [Concomitant]
     Active Substance: GLYCERIN\HYPROMELLOSES\POLYETHYLENE GLYCOL 400
  5. CHOROTHIAZZIDE [Concomitant]
  6. DAPTOMYCIN. [Concomitant]
     Active Substance: DAPTOMYCIN
  7. EPINEPHRINE. [Concomitant]
     Active Substance: EPINEPHRINE
  8. HYDRALAZINE [Concomitant]
     Active Substance: HYDRALAZINE HYDROCHLORIDE
  9. HYDROCODONE-HOMATROPINE [Concomitant]
  10. HYDROXYZINE HCI (ATARAX) [Concomitant]
  11. LIDOCAINE. [Concomitant]
     Active Substance: LIDOCAINE
  12. METOLAZONE. [Concomitant]
     Active Substance: METOLAZONE
  13. PANTOPRAZOLE [Concomitant]
     Active Substance: PANTOPRAZOLE
  14. POTASSIUM BICARBONATE. [Concomitant]
     Active Substance: POTASSIUM BICARBONATE
  15. PROPOFOL. [Concomitant]
     Active Substance: PROPOFOL
  16. ROCURONIUM [Concomitant]
     Active Substance: ROCURONIUM BROMIDE
  17. SOD/CAL/MG/POT (BSS) [Concomitant]
  18. SODIUM BICARB [Concomitant]
     Active Substance: SODIUM BICARBONATE
  19. ACETAMINOPHEN. [Concomitant]
     Active Substance: ACETAMINOPHEN
  20. BALSAM PERU-CASTOR OIL TOPICAL OINTMENT [Concomitant]
  21. COLLAGENASE [Concomitant]
     Active Substance: COLLAGENASE CLOSTRIDIUM HISTOLYTICUM
  22. D10W [Concomitant]
     Active Substance: DEXTROSE\WATER
  23. DORNASE ALFA. [Concomitant]
     Active Substance: DORNASE ALFA
  24. FUROSEMIDE. [Concomitant]
     Active Substance: FUROSEMIDE
  25. METHADONE [Concomitant]
     Active Substance: METHADONE HYDROCHLORIDE
  26. METHYLENE BLUE. [Concomitant]
     Active Substance: METHYLENE BLUE
  27. METHYLPREDNIS  SOD [Concomitant]
  28. MINOCYCLINE [Concomitant]
     Active Substance: MINOCYCLINE HYDROCHLORIDE
  29. PREMIX TITRATABLE DILUENT [Concomitant]
  30. THROMBIN [Concomitant]
     Active Substance: THROMBIN
  31. VASOPRESSIN. [Concomitant]
     Active Substance: VASOPRESSIN
  32. POTASSIUM CHLORIDE. [Concomitant]
     Active Substance: POTASSIUM CHLORIDE
  33. ASPIRIN. [Concomitant]
     Active Substance: ASPIRIN
  34. AZELASTINE. [Concomitant]
     Active Substance: AZELASTINE HYDROCHLORIDE
  35. DEXTROMETHORPHAN [Concomitant]
     Active Substance: DEXTROMETHORPHAN
  36. DEXTROSE. [Concomitant]
     Active Substance: DEXTROSE
  37. DIAZEPAM. [Concomitant]
     Active Substance: DIAZEPAM
  38. ELECTROLYTE-A [Concomitant]
  39. FAMOTIDINE. [Concomitant]
     Active Substance: FAMOTIDINE
  40. INSULIN LISPRO [Concomitant]
     Active Substance: INSULIN LISPRO
  41. MEROPENEM. [Concomitant]
     Active Substance: MEROPENEM
  42. MIDAZOLAM. [Concomitant]
     Active Substance: MIDAZOLAM
  43. OXYMETAZOLINE [Concomitant]
     Active Substance: OXYMETAZOLINE
  44. PANCRELIPASE DR [Concomitant]
  45. PIPERACILL-TAZ (ZOSYN) [Concomitant]
  46. SOD CHLORIDE NASAL [Concomitant]
  47. TOCILLZUMAB [Concomitant]
  48. VANCOMYCIN [Concomitant]
     Active Substance: VANCOMYCIN
  49. ZINC GLUCONATE [Concomitant]
     Active Substance: ZINC GLUCONATE
  50. MAGNESIUM SULFATE. [Concomitant]
     Active Substance: MAGNESIUM SULFATE
  51. ACETYLCYSTEINE. [Concomitant]
     Active Substance: ACETYLCYSTEINE
  52. CALCIUM CHLORIDE. [Concomitant]
     Active Substance: CALCIUM CHLORIDE
  53. CISATRACURLUM [Concomitant]
  54. DIPHENHYDRAMINES [Concomitant]
  55. ENOXAPARIN [Concomitant]
     Active Substance: ENOXAPARIN
  56. FLUCONAZOLE. [Concomitant]
     Active Substance: FLUCONAZOLE
  57. HYDROMORPHONE [Concomitant]
     Active Substance: HYDROMORPHONE
  58. INSULIN GLARGINE [Concomitant]
     Active Substance: INSULIN GLARGINE
  59. LACTULOSE. [Concomitant]
     Active Substance: LACTULOSE
  60. MAGNESIUM CITRATE. [Concomitant]
     Active Substance: MAGNESIUM CITRATE
  61. MICAFUNGIN. [Concomitant]
     Active Substance: MICAFUNGIN SODIUM
  62. NACL/ALOE VERA [Concomitant]
  63. OXYCODONE IR (ROXICODONE) [Concomitant]
  64. POT PHOSPHATE NEUTRAL [Concomitant]
  65. REMDESIVIR. [Concomitant]
     Active Substance: REMDESIVIR
  66. SOD BICARB [Concomitant]
  67. THIAMINE. [Concomitant]
     Active Substance: THIAMINE
  68. MAGNESIUM OXIDE. [Concomitant]
     Active Substance: MAGNESIUM OXIDE
  69. BUDESONIDE-FORMOTEROL [Concomitant]
     Active Substance: BUDESONIDE\FORMOTEROL
  70. ALBUMIN [Concomitant]
     Active Substance: ALBUMIN HUMAN
  71. ASCORBIC ACID. [Concomitant]
     Active Substance: ASCORBIC ACID
  72. CEFEPIME [Concomitant]
     Active Substance: CEFEPIME HYDROCHLORIDE
  73. CEFTRIAXONE. [Concomitant]
     Active Substance: CEFTRIAXONE
  74. DOCUSATE SOD [Concomitant]
  75. ESMOLOL [Concomitant]
     Active Substance: ESMOLOL HYDROCHLORIDE
  76. LOSARTAN. [Concomitant]
     Active Substance: LOSARTAN
  77. METOCLOPRAMIDE. [Concomitant]
     Active Substance: METOCLOPRAMIDE
  78. POLYETHYLENE GLYC (MIRALAX) [Concomitant]
  79. QUETIAPINE. [Concomitant]
     Active Substance: QUETIAPINE
  80. SILVER NITRATE APPLICATOR [Concomitant]
     Active Substance: POTASSIUM NITRATE\SILVER NITRATE
  81. SPIRONOLACTONE. [Concomitant]
     Active Substance: SPIRONOLACTONE
  82. POTASSIUM BICARBONATE. [Concomitant]
     Active Substance: POTASSIUM BICARBONATE
  83. CHLORHEXLDINE [Concomitant]
  84. DEXAMETHASONE. [Concomitant]
     Active Substance: DEXAMETHASONE
  85. DEXMEDETOMIDINE. [Concomitant]
     Active Substance: DEXMEDETOMIDINE
  86. EPOPROSTENOL. [Concomitant]
     Active Substance: EPOPROSTENOL
  87. HEPARIN [Concomitant]
     Active Substance: HEPARIN SODIUM
  88. HYDROCORTISONE SUCC [Concomitant]
  89. IOHEXOL [Concomitant]
     Active Substance: IOHEXOL
  90. K PHOS/NAPHOS [Concomitant]
  91. KETAMINE [Concomitant]
     Active Substance: KETAMINE
  92. MIDODRINE [Concomitant]
     Active Substance: MIDODRINE
  93. NICARDIPINE [Concomitant]
     Active Substance: NICARDIPINE
  94. SODIUM CHLORIDE. [Concomitant]
     Active Substance: SODIUM CHLORIDE
  95. ACETAZOLAMIDE. [Concomitant]
     Active Substance: ACETAZOLAMIDE
  96. ANGLOTENSIN [Concomitant]
  97. BUDESONIDE. [Concomitant]
     Active Substance: BUDESONIDE
  98. CLOTRIMAZOLE/BETAMETH [Concomitant]
  99. DEXTROSE, UNSPECIFIED FORM. [Concomitant]
     Active Substance: DEXTROSE, UNSPECIFIED FORM
  100. DOXYCYCLINE HYCL [Concomitant]
  101. FENTANYL. [Concomitant]
     Active Substance: FENTANYL
  102. FORMOTEROL [Concomitant]
     Active Substance: FORMOTEROL
  103. LACTOBACILLUS RHAMNOSUS [Concomitant]
     Active Substance: LACTOBACILLUS RHAMNOSUS
  104. SENNA [Concomitant]
     Active Substance: SENNA LEAF\SENNOSIDES\SENNOSIDES A AND B
  105. POTASSIUM PHOPHATE NEUTRAL [Concomitant]
  106. SODIUM PHOSPHATE [Concomitant]
     Active Substance: SODIUM PHOSPHATE
  107. ALBUTEROL-IPRATROPIUM [Concomitant]
     Active Substance: ALBUTEROL\IPRATROPIUM
  108. AMPICILLIN [Suspect]
     Active Substance: AMPICILLIN
  109. BISACODYL. [Concomitant]
     Active Substance: BISACODYL
  110. BUMETANIDE. [Concomitant]
     Active Substance: BUMETANIDE
  111. CEFAZOLIN [Concomitant]
     Active Substance: CEFAZOLIN
  112. CEFTOLOZANE-TAZOBACTAM [Concomitant]
  113. CLINDAMYCIN. [Concomitant]
     Active Substance: CLINDAMYCIN
  114. CLONAZEPAM. [Concomitant]
     Active Substance: CLONAZEPAM
  115. ERGOCALCIFEROL. [Concomitant]
     Active Substance: ERGOCALCIFEROL
  116. INSULIN REGULAR GLUCOMMANDER VIAL [Concomitant]
  117. LINEZOLID. [Concomitant]
     Active Substance: LINEZOLID
  118. LORAZEPAM. [Concomitant]
     Active Substance: LORAZEPAM
  119. MILRLNONE [Concomitant]
  120. MUPROCIN [Concomitant]
  121. NOREPINEPHRINE. [Concomitant]
     Active Substance: NOREPINEPHRINE
  122. NS EXCEL BAG [Concomitant]
  123. PHENYLEPHRINE [Concomitant]
     Active Substance: PHENYLEPHRINE HYDROCHLORIDE
  124. TOBRAMYCIN. [Concomitant]
     Active Substance: TOBRAMYCIN

REACTIONS (7)
  - Sputum culture positive [None]
  - Syncope [None]
  - Product quality issue [None]
  - Product contamination microbial [None]
  - Respiratory disorder [None]
  - Burkholderia test positive [None]
  - Recalled product administered [None]

NARRATIVE: CASE EVENT DATE: 20200930
